FAERS Safety Report 12127688 (Version 1)
Quarter: 2016Q1

REPORT INFORMATION
  Report Type: Spontaneous
  Country: ES (occurrence: ES)
  Receive Date: 20160229
  Receipt Date: 20160229
  Transmission Date: 20160526
  Serious: Yes (Other)
  Sender: FDA-Public Use
  Company Number: ES-BAYER-2016-034654

PATIENT
  Age: 2 Year
  Sex: Male

DRUGS (1)
  1. ASPIRINA [Suspect]
     Active Substance: ASPIRIN
     Dosage: UNK

REACTIONS (4)
  - Cerebral disorder [None]
  - Deafness [None]
  - Drug administered to patient of inappropriate age [None]
  - Product use issue [None]
